FAERS Safety Report 6894604-4 (Version None)
Quarter: 2010Q3

REPORT INFORMATION
  Report Type: 
  Country: None (occurrence: None)
  Receive Date: 20100802
  Receipt Date: 20100721
  Transmission Date: 20110219
  Serious: Yes (Hospitalization)
  Sender: FDA-Public Use
  Company Number: PHHO2009DE05107

PATIENT
  Sex: Female
  Weight: 50.2 kg

DRUGS (3)
  1. CERTICAN [Suspect]
     Indication: RENAL TRANSPLANT
     Dosage: 1.75 MG, BID
     Route: 048
     Dates: start: 20090225, end: 20090420
  2. MYFORTIC [Suspect]
     Indication: RENAL FAILURE
     Dosage: 360 MG, BID
     Route: 048
     Dates: end: 20090323
  3. URBASON [Suspect]
     Indication: RENAL TRANSPLANT
     Dosage: 8 MG, QD
     Route: 048

REACTIONS (8)
  - BACILLUS INFECTION [None]
  - BLOOD CREATININE INCREASED [None]
  - CITROBACTER INFECTION [None]
  - DYSURIA [None]
  - PYREXIA [None]
  - TRANSPLANT FAILURE [None]
  - URINARY TRACT INFECTION [None]
  - WHITE BLOOD CELLS URINE [None]
